FAERS Safety Report 21404879 (Version 1)
Quarter: 2022Q3

REPORT INFORMATION
  Report Type: Spontaneous
  Country: US (occurrence: None)
  Receive Date: 20220930
  Receipt Date: 20220930
  Transmission Date: 20221027
  Serious: Yes (Hospitalization, Disabling)
  Sender: FDA-Public Use
  Company Number: None

PATIENT
  Age: 67 Year
  Sex: Male

DRUGS (4)
  1. GLEOSTINE [Suspect]
     Active Substance: LOMUSTINE
     Dosage: OTHER FREQUENCY : Q 6 WEEKS;?
     Route: 048
     Dates: start: 20220825
  2. GLEOSTINE [Suspect]
     Active Substance: LOMUSTINE
     Dosage: OTHER FREQUENCY : Q 6 WEEKS;?
     Route: 048
     Dates: start: 20220525
  3. CEFDINIR [Concomitant]
     Active Substance: CEFDINIR
  4. BACTRIM DS [Concomitant]
     Active Substance: SULFAMETHOXAZOLE\TRIMETHOPRIM

REACTIONS (1)
  - Infection [None]

NARRATIVE: CASE EVENT DATE: 20220929
